FAERS Safety Report 4732835-X (Version None)
Quarter: 2005Q3

REPORT INFORMATION
  Report Type: 
  Country: None (occurrence: None)
  Receive Date: 20050801
  Receipt Date: 20050720
  Transmission Date: 20060218
  Serious: Yes (Other)
  Sender: FDA-Public Use
  Company Number: 2005094688

PATIENT
  Age: 22 Year
  Sex: Male

DRUGS (3)
  1. LYRICA [Suspect]
     Indication: TRIGEMINAL NEURALGIA
     Dosage: 150 MG (75 MG, 2 IN  1 D),ORAL
     Route: 048
     Dates: start: 20050620, end: 20050622
  2. AMITRIPTYLINE HCL [Concomitant]
  3. TRAMADOL HCL [Concomitant]

REACTIONS (2)
  - AGGRESSION [None]
  - AGITATION [None]
